FAERS Safety Report 9315524 (Version 2)
Quarter: 2013Q2

REPORT INFORMATION
  Report Type: Spontaneous
  Country: US (occurrence: US)
  Receive Date: 20130529
  Receipt Date: 20130530
  Transmission Date: 20140414
  Serious: No
  Sender: FDA-Public Use
  Company Number: US-009507513-1305USA011453

PATIENT
  Age: 27 Year
  Sex: Female
  Weight: 54.42 kg

DRUGS (9)
  1. MIRALAX [Suspect]
     Indication: CONSTIPATION
     Dosage: 17 G, QD
     Route: 048
     Dates: start: 20130424, end: 20130427
  2. MIRALAX [Suspect]
     Indication: MEDICAL OBSERVATION
  3. ADVIL [Concomitant]
     Indication: FIBROMYALGIA
     Dosage: UNK, UNKNOWN
  4. ALEVE [Concomitant]
     Indication: FIBROMYALGIA
     Dosage: UNK, UNKNOWN
  5. ABILIFY [Concomitant]
     Indication: MAJOR DEPRESSION
     Dosage: UNK, UNKNOWN
  6. WELLBUTRIN [Concomitant]
     Indication: MAJOR DEPRESSION
     Dosage: UNK, UNKNOWN
  7. CYMBALTA [Concomitant]
     Indication: MAJOR DEPRESSION
     Dosage: UNK, UNKNOWN
  8. CLONAZEPAM [Concomitant]
     Indication: SLEEP DISORDER THERAPY
     Dosage: UNK, UNKNOWN
  9. VITAMIN D (UNSPECIFIED) [Concomitant]
     Indication: ROUTINE HEALTH MAINTENANCE
     Dosage: UNK, UNKNOWN

REACTIONS (3)
  - Abdominal pain upper [Unknown]
  - Abdominal discomfort [Unknown]
  - Drug ineffective [Unknown]
